FAERS Safety Report 8923784 (Version 1)
Quarter: 2012Q4

REPORT INFORMATION
  Report Type: 
  Country: US (occurrence: US)
  Receive Date: 20121126
  Receipt Date: 20121126
  Transmission Date: 20130627
  Serious: No
  Sender: FDA-Public Use
  Company Number: US-009507513-1211USA010143

PATIENT
  Sex: Male

DRUGS (3)
  1. REBETOL [Suspect]
     Dosage: UNK
     Dates: start: 20121107, end: 20121117
  2. PEGINTRON [Suspect]
     Indication: HEPATITIS C
     Dosage: UNK
     Dates: start: 20121107, end: 20121117
  3. TELAPREVIR [Suspect]
     Indication: HEPATITIS C
     Dosage: UNK
     Dates: start: 20121107, end: 20121117

REACTIONS (7)
  - Adverse drug reaction [Unknown]
  - Aphagia [Unknown]
  - Dysphagia [Unknown]
  - Insomnia [Unknown]
  - Anxiety [Unknown]
  - Gastrointestinal pain [Unknown]
  - Rash [Unknown]
